FAERS Safety Report 7257665-9 (Version None)
Quarter: 2011Q1

REPORT INFORMATION
  Report Type: 
  Country: None (occurrence: None)
  Receive Date: 20110129
  Receipt Date: 20100513
  Transmission Date: 20110831
  Serious: No
  Sender: FDA-Public Use
  Company Number: US-ABBOTT-10P-163-0644099-00

PATIENT
  Sex: Female

DRUGS (2)
  1. ULTRAM [Concomitant]
     Indication: BACK PAIN
  2. HUMIRA [Suspect]
     Indication: RHEUMATOID ARTHRITIS
     Dates: start: 20070501

REACTIONS (1)
  - ELECTROCARDIOGRAM ABNORMAL [None]
